FAERS Safety Report 11232917 (Version 1)
Quarter: 2015Q3

REPORT INFORMATION
  Report Type: Report from Study
  Country: US (occurrence: US)
  Receive Date: 20150701
  Receipt Date: 20150701
  Transmission Date: 20151125
  Serious: Yes (Hospitalization)
  Sender: FDA-Public Use
  Company Number: US-ACTELION-A-US2015-120075

PATIENT
  Age: 59 Year
  Sex: Female

DRUGS (12)
  1. IPRATROPIUM [Concomitant]
     Active Substance: IPRATROPIUM
  2. MAGNESIUM [Concomitant]
     Active Substance: MAGNESIUM
  3. LASIX [Concomitant]
     Active Substance: FUROSEMIDE
  4. CALCIUM [Concomitant]
     Active Substance: CALCIUM
  5. NOVOLIN R [Concomitant]
     Active Substance: INSULIN HUMAN
  6. BUMEX [Concomitant]
     Active Substance: BUMETANIDE
  7. ZINC [Concomitant]
     Active Substance: ZINC\ZINC CHLORIDE
  8. VITAMIN B COMPLEX [Concomitant]
     Active Substance: CYANOCOBALAMIN\DEXPANTHENOL\NIACINAMIDE\PYRIDOXINE HYDROCHLORIDE\RIBOFLAVIN 5^-PHOSPHATE SODIUM\THIAMINE HYDROCHLORIDE\VITAMIN B COMPLEX
  9. ADCIRCA [Concomitant]
     Active Substance: TADALAFIL
  10. PROAIR HFA [Concomitant]
     Active Substance: ALBUTEROL SULFATE
  11. LEVEMIR [Concomitant]
     Active Substance: INSULIN DETEMIR
  12. MACITENTAN [Suspect]
     Active Substance: MACITENTAN
     Indication: PULMONARY ARTERIAL HYPERTENSION
     Dosage: 10 MG, UNK
     Route: 048

REACTIONS (5)
  - Blood glucose abnormal [Recovering/Resolving]
  - Dehydration [Recovering/Resolving]
  - Right ventricular failure [Recovering/Resolving]
  - No therapeutic response [Unknown]
  - Anaemia [Recovering/Resolving]
